FAERS Safety Report 9208206 (Version 2)
Quarter: 2013Q2

REPORT INFORMATION
  Report Type: Spontaneous
  Country: US (occurrence: US)
  Receive Date: 20130403
  Receipt Date: 20130423
  Transmission Date: 20140414
  Serious: Yes (Disabling, Other)
  Sender: FDA-Public Use
  Company Number: US-BAXTER-2013BAX012283

PATIENT
  Age: 9 Year
  Sex: Male
  Weight: 38.2 kg

DRUGS (4)
  1. ADVATE [Suspect]
     Indication: ARTHRALGIA
     Dosage: 40 UNITS/KG/DOSE
     Dates: start: 20040405
  2. ADVATE [Suspect]
     Indication: FACTOR VIII DEFICIENCY
     Dosage: 20 UNITS/KG/DOSE FOR ACUTE MINOR BLEEDS
     Dates: start: 20040405
  3. ADVATE [Suspect]
     Indication: PROPHYLAXIS
     Dosage: 30 UNITS/KG/DOSE FOR ACUTE MODERATE BLEEDS
     Dates: start: 20040405
  4. ADVATE [Suspect]
     Indication: HAEMARTHROSIS
     Dosage: 50 UNITS/KG/DOSE FOR ACUTE SEVERE BLEEDS
     Dates: start: 20040405

REACTIONS (2)
  - Neuralgia [Not Recovered/Not Resolved]
  - Pain in extremity [Not Recovered/Not Resolved]
